FAERS Safety Report 22956326 (Version 2)
Quarter: 2023Q4

REPORT INFORMATION
  Report Type: Spontaneous
  Country: SE (occurrence: SE)
  Receive Date: 20230919
  Receipt Date: 20231030
  Transmission Date: 20240110
  Serious: Yes (Life-Threatening, Hospitalization)
  Sender: FDA-Public Use
  Company Number: SE-NOVOPROD-1113509

PATIENT
  Age: 73 Year
  Sex: Female

DRUGS (2)
  1. NOVORAPID [Suspect]
     Active Substance: INSULIN ASPART
     Indication: Type 1 diabetes mellitus
     Dosage: 6-10 UNITS AND SOMETIMES A LITTLE MORE
  2. TRESIBA [Suspect]
     Active Substance: INSULIN DEGLUDEC
     Indication: Type 1 diabetes mellitus
     Dosage: 18-20 UNITS 1 TIME A DAY, IN THE MORNING. STARTED USING ^RECENTLY^

REACTIONS (3)
  - Renal failure [Not Recovered/Not Resolved]
  - Cerebral haemorrhage [Unknown]
  - Myocardial infarction [Unknown]
